FAERS Safety Report 6055220-X (Version None)
Quarter: 2009Q1

REPORT INFORMATION
  Report Type: 
  Country: None (occurrence: None)
  Receive Date: 20090123
  Receipt Date: 20090111
  Transmission Date: 20090719
  Serious: Yes (Death)
  Sender: FDA-Public Use
  Company Number: 144175

PATIENT
  Age: 61 Year

DRUGS (11)
  1. METHOTREXATE [Suspect]
     Indication: HODGKIN'S DISEASE
  2. VINCRISTINE SULFATE [Suspect]
     Indication: HODGKIN'S DISEASE
  3. MECHLORETHAMINE [Suspect]
     Indication: HODGKIN'S DISEASE
  4. PROCARBAZINE [Suspect]
     Indication: HODGKIN'S DISEASE
  5. PREDNISONE [Suspect]
     Indication: HODGKIN'S DISEASE
  6. DOXORUBICIN HCL [Suspect]
     Indication: HODGKIN'S DISEASE
  7. BLEOMYCIN SULFATE [Suspect]
     Indication: HODGKIN'S DISEASE
  8. CYCLOPHOSPHAMIDE [Suspect]
     Indication: HODGKIN'S DISEASE
  9. LOMUSTINE [Suspect]
     Indication: HODGKIN'S DISEASE
  10. ETOPOSIDE [Suspect]
     Indication: HODGKIN'S DISEASE
  11. THERAPEUTIC RADIOPHARMACEUTICALS [Suspect]
     Indication: HODGKIN'S DISEASE
     Dosage: 20.0 GY; MEDIASTINAL BOOST 15.0 GY

REACTIONS (2)
  - NON-HODGKIN'S LYMPHOMA [None]
  - STEM CELL TRANSPLANT [None]
